FAERS Safety Report 5636957-0 (Version None)
Quarter: 2008Q1

REPORT INFORMATION
  Report Type: 
  Country: None (occurrence: None)
  Receive Date: 20080225
  Receipt Date: 20080219
  Transmission Date: 20080703
  Serious: Yes (Death, Hospitalization)
  Sender: FDA-Public Use
  Company Number: FR-AVENTIS-200810684FR

PATIENT
  Age: 80 Year
  Sex: Male

DRUGS (2)
  1. CLAFORAN [Suspect]
     Route: 030
     Dates: start: 20070625, end: 20070708
  2. GENTAMICIN [Suspect]
     Route: 030
     Dates: start: 20070625, end: 20070702

REACTIONS (1)
  - RENAL FAILURE ACUTE [None]
